FAERS Safety Report 4497209-8 (Version None)
Quarter: 2004Q4

REPORT INFORMATION
  Report Type: 
  Country: None (occurrence: None)
  Receive Date: 20041110
  Receipt Date: 20030324
  Transmission Date: 20050328
  Serious: Yes (Hospitalization)
  Sender: FDA-Public Use
  Company Number: US-BRISTOL-MYERS SQUIBB COMPANY-12204582

PATIENT
  Age: 76 Year
  Sex: Male
  Weight: 69 kg

DRUGS (13)
  1. CETUXIMAB [Suspect]
     Indication: SQUAMOUS CELL CARCINOMA
     Dosage: INITIAL TX WITH LD (400MG/M2) ON 11-DEC-1999.   990261
     Route: 042
     Dates: start: 20000126, end: 20000126
  2. CISPLATIN [Suspect]
     Indication: SQUAMOUS CELL CARCINOMA
     Dosage: INITIAL TX ON 11-DEC-1999.
     Route: 042
     Dates: start: 20000126, end: 20000126
  3. TAXOL [Suspect]
     Indication: SQUAMOUS CELL CARCINOMA
  4. MANNITOL [Concomitant]
  5. TAGAMET [Concomitant]
  6. BENADRYL [Concomitant]
  7. DECADRON [Concomitant]
  8. ZOFRAN [Concomitant]
  9. ADVIL [Concomitant]
  10. LORTAB [Concomitant]
  11. LACTULOSE [Concomitant]
  12. TYLENOL W/ CODEINE NO. 3 [Concomitant]
  13. ZANTAC [Concomitant]

REACTIONS (29)
  - ABDOMINAL PAIN [None]
  - ASTHENIA [None]
  - BRONCHITIS [None]
  - BRONCHOPNEUMONIA [None]
  - CANDIDIASIS [None]
  - CONSTIPATION [None]
  - DEHYDRATION [None]
  - DENTAL CARIES [None]
  - DISEASE RECURRENCE [None]
  - DYSPHAGIA [None]
  - GASTRITIS [None]
  - GASTROENTERITIS [None]
  - GINGIVITIS [None]
  - HELICOBACTER GASTRITIS [None]
  - HYPOKALAEMIA [None]
  - KLEBSIELLA INFECTION [None]
  - LOWER RESPIRATORY TRACT INFECTION [None]
  - MARASMUS [None]
  - MUSCLE CRAMP [None]
  - NAUSEA [None]
  - PLEURISY [None]
  - PNEUMONIA [None]
  - PNEUMONIA ASPIRATION [None]
  - PRODUCTIVE COUGH [None]
  - RADIATION FIBROSIS - LUNG [None]
  - RADIATION SKIN INJURY [None]
  - RHONCHI [None]
  - VOMITING [None]
  - WHEEZING [None]
